FAERS Safety Report 4821680-2 (Version None)
Quarter: 2005Q4

REPORT INFORMATION
  Report Type: 
  Country: None (occurrence: None)
  Receive Date: 20051103
  Receipt Date: 20051018
  Transmission Date: 20060501
  Serious: Yes (Other)
  Sender: FDA-Public Use
  Company Number: USA0509109276

PATIENT
  Age: 45 Year
  Sex: Male
  Weight: 91 kg

DRUGS (1)
  1. ZYPREXA [Suspect]

REACTIONS (6)
  - CONVULSION [None]
  - DIZZINESS [None]
  - HYPERHIDROSIS [None]
  - MYOCARDIAL INFARCTION [None]
  - RENAL DISORDER [None]
  - TREMOR [None]
